FAERS Safety Report 16046330 (Version 3)
Quarter: 2019Q2

REPORT INFORMATION
  Report Type: Report from Study
  Country: US (occurrence: US)
  Receive Date: 20190307
  Receipt Date: 20190506
  Transmission Date: 20190711
  Serious: Yes (Hospitalization, Other)
  Sender: FDA-Public Use
  Company Number: US-TAKEDA-2018TUS035009

PATIENT
  Age: 80 Year
  Sex: Female

DRUGS (3)
  1. PONATINIB [Suspect]
     Active Substance: PONATINIB
     Indication: ACUTE LYMPHOCYTIC LEUKAEMIA
     Dosage: 30 MILLIGRAM, QD
     Route: 048
     Dates: start: 2018
  2. PONATINIB [Suspect]
     Active Substance: PONATINIB
     Dosage: 15 MILLIGRAM, QD
     Route: 048
  3. PONATINIB [Suspect]
     Active Substance: PONATINIB
     Indication: PLASMA CELL MYELOMA
     Dosage: 45 MILLIGRAM, QD
     Route: 048
     Dates: start: 20181120

REACTIONS (9)
  - White blood cell count decreased [Unknown]
  - Fall [Unknown]
  - Cerebral haemorrhage [Unknown]
  - Alopecia [Unknown]
  - Blood pressure increased [Unknown]
  - Off label use [Unknown]
  - Urinary tract infection [Unknown]
  - Upper limb fracture [Unknown]
  - Head injury [Unknown]

NARRATIVE: CASE EVENT DATE: 20190425
